FAERS Safety Report 4390783-1 (Version None)
Quarter: 2004Q3

REPORT INFORMATION
  Report Type: 
  Country: None (occurrence: None)
  Receive Date: 20040706
  Receipt Date: 20040706
  Transmission Date: 20050211
  Serious: Yes (Death, Life-Threatening, Hospitalization)
  Sender: FDA-Public Use
  Company Number: None

PATIENT
  Sex: Female
  Weight: 65 kg

DRUGS (1)
  1. ALTEPLASE 1 MG/ML GENENTECH [Suspect]
     Indication: ISCHAEMIC STROKE
     Dates: start: 20040625, end: 20040625

REACTIONS (1)
  - DEATH [None]
